FAERS Safety Report 16702772 (Version 5)
Quarter: 2022Q1

REPORT INFORMATION
  Report Type: Report from Study
  Country: AU (occurrence: AU)
  Receive Date: 20190814
  Receipt Date: 20220118
  Transmission Date: 20220423
  Serious: Yes (Other)
  Sender: FDA-Public Use
  Company Number: AU-SHIRE-AU201805560

PATIENT
  Age: 15 Year
  Sex: Male
  Weight: 49 kg

DRUGS (14)
  1. IDURSULFASE [Suspect]
     Active Substance: IDURSULFASE
     Indication: Mucopolysaccharidosis II
     Dosage: 24 MILLIGRAM, 1/WEEK
     Route: 041
     Dates: start: 20110323
  2. IDURSULFASE [Suspect]
     Active Substance: IDURSULFASE
     Dosage: 24 MILLIGRAM, 1/WEEK
     Route: 041
     Dates: start: 20110323
  3. IDURSULFASE [Suspect]
     Active Substance: IDURSULFASE
     Dosage: 0.49 MILLIGRAM/KILOGRAM, 1/WEEK
     Route: 041
     Dates: start: 20110323
  4. IDURSULFASE [Suspect]
     Active Substance: IDURSULFASE
     Dosage: 0.49 MILLIGRAM/KILOGRAM, 1/WEEK
     Route: 041
     Dates: start: 20110323
  5. IDURSULFASE [Suspect]
     Active Substance: IDURSULFASE
     Dosage: 0.49 MILLIGRAM/KILOGRAM, QD
     Route: 041
     Dates: start: 20110323
  6. IDURSULFASE [Suspect]
     Active Substance: IDURSULFASE
     Dosage: 0.49 MILLIGRAM/KILOGRAM, 1/WEEK
     Route: 041
     Dates: start: 20180705
  7. IDURSULFASE [Suspect]
     Active Substance: IDURSULFASE
     Dosage: 0.49 MILLIGRAM/KILOGRAM, QD
     Route: 042
     Dates: start: 20110323
  8. IDURSULFASE [Suspect]
     Active Substance: IDURSULFASE
     Dosage: 24 MILLIGRAM, 1/WEEK
     Route: 042
     Dates: start: 20180705
  9. IDURSULFASE [Suspect]
     Active Substance: IDURSULFASE
     Dosage: 0.6 MILLIGRAM/KILOGRAM
     Route: 041
     Dates: start: 20190321
  10. IDURSULFASE [Suspect]
     Active Substance: IDURSULFASE
     Dosage: 36 MILLIGRAM, 1/WEEK
     Route: 041
     Dates: start: 20210422
  11. IDURSULFASE [Suspect]
     Active Substance: IDURSULFASE
     Dosage: 30 MILLIGRAM, 1/WEEK
     Route: 041
  12. IDURSULFASE [Suspect]
     Active Substance: IDURSULFASE
     Dosage: 30 MILLIGRAM, QD
     Route: 042
  13. IDURSULFASE [Suspect]
     Active Substance: IDURSULFASE
     Dosage: 24 MILLIGRAM, 1/WEEK
     Route: 041
  14. IDURSULFASE [Suspect]
     Active Substance: IDURSULFASE
     Dosage: 36 MILLIGRAM, 1/WEEK
     Route: 041
     Dates: start: 20210422

REACTIONS (10)
  - Varicella [Recovered/Resolved]
  - Blood pressure decreased [Unknown]
  - Blood pressure abnormal [Unknown]
  - Blood pressure increased [Unknown]
  - Oropharyngeal pain [Not Recovered/Not Resolved]
  - Off label use [Unknown]
  - Rhinorrhoea [Not Recovered/Not Resolved]
  - Swelling [Recovering/Resolving]
  - Discomfort [Recovering/Resolving]
  - Inflammation [Recovering/Resolving]

NARRATIVE: CASE EVENT DATE: 20180201
